FAERS Safety Report 22597589 (Version 1)
Quarter: 2023Q2

REPORT INFORMATION
  Report Type: Spontaneous
  Country: US (occurrence: US)
  Receive Date: 20230614
  Receipt Date: 20230614
  Transmission Date: 20230722
  Serious: Yes (Hospitalization, Other)
  Sender: FDA-Public Use
  Company Number: US-AMNEAL PHARMACEUTICALS-2023-AMRX-02058

PATIENT
  Sex: Male

DRUGS (2)
  1. RELEUKO [Suspect]
     Active Substance: FILGRASTIM-AYOW
     Indication: Systemic lupus erythematosus
     Route: 065
  2. RELEUKO [Suspect]
     Active Substance: FILGRASTIM-AYOW
     Indication: Pancytopenia

REACTIONS (3)
  - Cardiac arrest [Unknown]
  - Systemic lupus erythematosus [Unknown]
  - White blood cell count increased [Unknown]
